FAERS Safety Report 6749495-9 (Version None)
Quarter: 2010Q2

REPORT INFORMATION
  Report Type: 
  Country: None (occurrence: None)
  Receive Date: 20100527
  Receipt Date: 20100527
  Transmission Date: 20101027
  Serious: Yes (Other)
  Sender: FDA-Public Use
  Company Number: None

PATIENT
  Sex: Female
  Weight: 70.3075 kg

DRUGS (2)
  1. MULTAQ [Suspect]
     Indication: ATRIAL FIBRILLATION
     Dosage: 400 MG 2 X DAY MOUTH
     Route: 048
     Dates: start: 20100301, end: 20100419
  2. MULTAQ [Suspect]

REACTIONS (4)
  - DECREASED APPETITE [None]
  - GLOSSODYNIA [None]
  - HEPATIC ENZYME INCREASED [None]
  - THROAT IRRITATION [None]
